FAERS Safety Report 8502321-X (Version None)
Quarter: 2012Q3

REPORT INFORMATION
  Report Type: 
  Country: None (occurrence: None)
  Receive Date: 20120711
  Receipt Date: 20120702
  Transmission Date: 20120928
  Serious: Yes (Other)
  Sender: FDA-Public Use
  Company Number: US-ASTRAZENECA-2009UW03515

PATIENT
  Age: 45 Year
  Sex: Female

DRUGS (3)
  1. NEXIUM [Suspect]
     Route: 048
     Dates: start: 20051108
  2. CRESTOR [Suspect]
     Route: 048
  3. SEROQUEL [Concomitant]
     Route: 048

REACTIONS (6)
  - DRUG INEFFECTIVE [None]
  - MALAISE [None]
  - BACK PAIN [None]
  - DRY MOUTH [None]
  - DIABETES MELLITUS [None]
  - DRUG DOSE OMISSION [None]
